FAERS Safety Report 4641271-6 (Version None)
Quarter: 2005Q2

REPORT INFORMATION
  Report Type: 
  Country: None (occurrence: None)
  Receive Date: 20050421
  Receipt Date: 20050414
  Transmission Date: 20051028
  Serious: Yes (Hospitalization)
  Sender: FDA-Public Use
  Company Number: US-JNJFOC-20050304434

PATIENT
  Sex: Male
  Weight: 72.58 kg

DRUGS (5)
  1. EXTRA STRENGTH TYLENOL [Suspect]
     Route: 049
  2. EXTRA STRENGTH TYLENOL [Suspect]
     Indication: HEADACHE
     Dosage: UNKNOWN
     Route: 049
  3. WELLBUTRIN [Concomitant]
     Dosage: UNKNOWN
  4. DIVALPROEX SODIUM [Concomitant]
     Dosage: UNKNOWN
  5. PROPRANOLOL [Concomitant]
     Dosage: UNKNOWN

REACTIONS (5)
  - DEPRESSED LEVEL OF CONSCIOUSNESS [None]
  - DRUG TOXICITY [None]
  - DYSARTHRIA [None]
  - OVERDOSE [None]
  - SOMNOLENCE [None]
